FAERS Safety Report 8501639-4 (Version None)
Quarter: 2012Q3

REPORT INFORMATION
  Report Type: 
  Country: None (occurrence: None)
  Receive Date: 20120711
  Receipt Date: 20120627
  Transmission Date: 20120928
  Serious: Yes (Hospitalization, Other)
  Sender: FDA-Public Use
  Company Number: DE-BIOGENIDEC-2012BI006758

PATIENT
  Age: 37 Year
  Sex: Male

DRUGS (6)
  1. IBUPROFEN [Concomitant]
  2. UROREC [Concomitant]
  3. CITALOPRAM HYDROBROMIDE [Concomitant]
  4. MIRTAZAPINE [Concomitant]
  5. TYSABRI [Suspect]
     Indication: RELAPSING-REMITTING MULTIPLE SCLEROSIS
     Route: 042
     Dates: start: 20110531
  6. PANTOPRAZOLE [Concomitant]

REACTIONS (3)
  - BLADDER NECK OBSTRUCTION [None]
  - TESTICULAR ABSCESS [None]
  - URETHRAL MEATUS STENOSIS [None]
